FAERS Safety Report 4935122-X (Version None)
Quarter: 2006Q1

REPORT INFORMATION
  Report Type: 
  Country: None (occurrence: None)
  Receive Date: 20060306
  Receipt Date: 20060306
  Transmission Date: 20060701
  Serious: Yes (Death, Hospitalization)
  Sender: FDA-Public Use
  Company Number: None

PATIENT
  Age: 49 Year
  Sex: Female
  Weight: 85 kg

DRUGS (7)
  1. KETEK [Suspect]
     Indication: RESPIRATORY TRACT INFECTION
     Dosage: 2 TABS  DAILY  PO
     Route: 048
     Dates: start: 20060202, end: 20060203
  2. CINACALCET [Concomitant]
  3. CALCIUM ACETATE [Concomitant]
  4. ATORVASTATIN CALCIUM [Concomitant]
  5. LOSARTAN POTASSIUM [Concomitant]
  6. POTASSIUM CHLORIDE [Concomitant]
  7. LEVOTHYROXINE SODIUM [Concomitant]

REACTIONS (9)
  - CONGENITAL CYSTIC KIDNEY DISEASE [None]
  - DISSEMINATED INTRAVASCULAR COAGULATION [None]
  - HEPATIC FAILURE [None]
  - LEUKOPENIA [None]
  - NAUSEA [None]
  - NEUROLOGICAL SYMPTOM [None]
  - RESPIRATORY FAILURE [None]
  - THROMBOCYTOPENIA [None]
  - VOMITING [None]
